FAERS Safety Report 4949066-0 (Version None)
Quarter: 2006Q1

REPORT INFORMATION
  Report Type: 
  Country: None (occurrence: None)
  Receive Date: 20060316
  Receipt Date: 20060303
  Transmission Date: 20060701
  Serious: Yes (Other)
  Sender: FDA-Public Use
  Company Number: 2006019802

PATIENT
  Age: 55 Year
  Sex: Female
  Weight: 79.3795 kg

DRUGS (8)
  1. CELEBREX [Suspect]
     Indication: FIBROMYALGIA
     Dosage: (1 IN 1 D), ORAL
     Route: 048
     Dates: start: 20060101, end: 20060101
  2. CELEBREX [Suspect]
     Indication: OSTEOARTHRITIS
     Dosage: (1 IN 1 D), ORAL
     Route: 048
     Dates: start: 20060101, end: 20060101
  3. BEXTRA [Suspect]
     Indication: FIBROMYALGIA
     Dosage: 10 MG (10 MG, 1 IN 1 D),
  4. BEXTRA [Suspect]
     Indication: OSTEOARTHRITIS
     Dosage: 10 MG (10 MG, 1 IN 1 D),
  5. ZANAFLEX [Concomitant]
  6. PROTONIX [Concomitant]
  7. BUSPAR [Concomitant]
  8. ELAVIL [Concomitant]

REACTIONS (16)
  - ANXIETY [None]
  - ARTHRALGIA [None]
  - BACK PAIN [None]
  - BURSITIS [None]
  - CONDITION AGGRAVATED [None]
  - DECREASED APPETITE [None]
  - DEHYDRATION [None]
  - DRUG INEFFECTIVE [None]
  - DYSPEPSIA [None]
  - FIBROMYALGIA [None]
  - GASTRITIS [None]
  - GASTROOESOPHAGEAL REFLUX DISEASE [None]
  - INFLAMMATION [None]
  - INTERVERTEBRAL DISC DISORDER [None]
  - STRESS [None]
  - WEIGHT DECREASED [None]
